FAERS Safety Report 12751157 (Version 1)
Quarter: 2016Q3

REPORT INFORMATION
  Report Type: Spontaneous
  Country: IT (occurrence: IT)
  Receive Date: 20160915
  Receipt Date: 20160915
  Transmission Date: 20161109
  Serious: Yes (Other)
  Sender: FDA-Public Use
  Company Number: IT-FSC THERAPEUTICS-2016ECL00031

PATIENT
  Sex: Male

DRUGS (1)
  1. RABEPRAZOLE SODIUM. [Suspect]
     Active Substance: RABEPRAZOLE SODIUM
     Dosage: 10 MG, 1X/DAY
     Route: 048

REACTIONS (4)
  - Meniscus injury [Unknown]
  - Arthralgia [Unknown]
  - Hiatus hernia [Unknown]
  - Vitreous floaters [Unknown]
